FAERS Safety Report 9397196 (Version 1)
Quarter: 2013Q3

REPORT INFORMATION
  Report Type: Spontaneous
  Country: US (occurrence: None)
  Receive Date: 20130710
  Receipt Date: 20130710
  Transmission Date: 20140515
  Serious: Yes (Hospitalization)
  Sender: FDA-Public Use
  Company Number: None

PATIENT
  Age: 12 Year
  Sex: Female
  Weight: 48.1 kg

DRUGS (1)
  1. METHOTREXATE [Suspect]
     Indication: ACUTE LYMPHOCYTIC LEUKAEMIA
     Dosage: PER PROTOCOL
     Route: 037
     Dates: start: 20130607

REACTIONS (3)
  - Leukoencephalopathy [None]
  - Toxicity to various agents [None]
  - Product quality issue [None]
